FAERS Safety Report 4426142-2 (Version None)
Quarter: 2004Q3

REPORT INFORMATION
  Report Type: 
  Country: None (occurrence: None)
  Receive Date: 20040811
  Receipt Date: 20040723
  Transmission Date: 20050211
  Serious: Yes (Hospitalization)
  Sender: FDA-Public Use
  Company Number: USA040772008

PATIENT
  Age: 68 Year
  Sex: Female
  Weight: 38 kg

DRUGS (8)
  1. FORTEO [Suspect]
     Indication: OSTEOPOROSIS
     Dosage: 20 UG/1 DAY
     Dates: start: 20040525
  2. CALCIUM WITH VITAMIN D [Concomitant]
  3. FORADIL [Concomitant]
  4. COMBIVENT [Concomitant]
  5. PREDNISONE [Concomitant]
  6. PULMICORT [Concomitant]
  7. ATROVENT [Concomitant]
  8. FLOVENT [Concomitant]

REACTIONS (3)
  - BRONCHITIS ACUTE [None]
  - CONDITION AGGRAVATED [None]
  - DYSPNOEA [None]
